FAERS Safety Report 17679154 (Version 1)
Quarter: 2020Q2

REPORT INFORMATION
  Report Type: Report from Study
  Country: BR (occurrence: BR)
  Receive Date: 20200417
  Receipt Date: 20200417
  Transmission Date: 20200714
  Serious: Yes (Hospitalization, Other)
  Sender: FDA-Public Use
  Company Number: BR-UCBSA-2020015948

PATIENT
  Age: 56 Year
  Sex: Female
  Weight: 77 kg

DRUGS (6)
  1. CERTOLIZUMAB PEGOL RA [Suspect]
     Active Substance: CERTOLIZUMAB PEGOL
     Indication: RHEUMATOID ARTHRITIS
     Dosage: 400 MILLIGRAM, EV 2 WEEKS(QOW)
     Route: 058
     Dates: start: 20200319
  2. ASPIRINA PREVENT [Concomitant]
     Active Substance: ASPIRIN
     Indication: CHEST PAIN
     Dosage: 1 TABLET IF PAIN
     Route: 048
     Dates: start: 2018
  3. CLONAZEPAN [Concomitant]
     Active Substance: CLONAZEPAM
     Indication: SLEEP DISORDER
     Dosage: 1 TABLET A DAY
     Route: 048
     Dates: start: 2014
  4. DULOXETINA [DULOXETINE] [Concomitant]
     Active Substance: DULOXETINE
     Indication: ANXIETY
     Dosage: 30 MILLIGRAM, ONCE DAILY (QD)
     Route: 048
     Dates: start: 2018
  5. CLORIDRATO DE SOTALOL [Concomitant]
     Active Substance: SOTALOL HYDROCHLORIDE
     Indication: PRODUCT USED FOR UNKNOWN INDICATION
     Dosage: 160 (UNIT UNKNOWN), 2X/DAY (BID)
     Route: 048
     Dates: start: 2018
  6. LOSARTAN. [Concomitant]
     Active Substance: LOSARTAN
     Indication: HYPERTENSION
     Dosage: 2 TABLETS IN EVERY 12 HOURS
     Route: 048
     Dates: start: 2018

REACTIONS (6)
  - Injection site pain [Not Recovered/Not Resolved]
  - Rheumatoid arthritis [Not Recovered/Not Resolved]
  - Off label use [Unknown]
  - Product preparation error [Unknown]
  - Hypotension [Unknown]
  - Injection site hypersensitivity [Not Recovered/Not Resolved]

NARRATIVE: CASE EVENT DATE: 2020
